FAERS Safety Report 25912655 (Version 1)
Quarter: 2025Q4

REPORT INFORMATION
  Report Type: Spontaneous
  Country: RU (occurrence: RU)
  Receive Date: 20251013
  Receipt Date: 20251013
  Transmission Date: 20260118
  Serious: Yes (Other)
  Sender: ORGANON
  Company Number: RU-ORGANON-O2510RUS000499

PATIENT
  Age: 37 Year
  Sex: Female

DRUGS (1)
  1. ETONOGESTREL [Suspect]
     Active Substance: ETONOGESTREL
     Dosage: 1 IMPLANT

REACTIONS (2)
  - Vaginal haemorrhage [Not Recovered/Not Resolved]
  - Uterine scar [Not Recovered/Not Resolved]

NARRATIVE: CASE EVENT DATE: 20250904
